FAERS Safety Report 11774869 (Version 1)
Quarter: 2015Q4

REPORT INFORMATION
  Report Type: Spontaneous
  Country: US (occurrence: US)
  Receive Date: 20151124
  Receipt Date: 20151124
  Transmission Date: 20160304
  Serious: Yes (Hospitalization, Other)
  Sender: FDA-Public Use
  Company Number: PHHY2015US151372

PATIENT
  Age: 51 Year
  Sex: Female

DRUGS (1)
  1. MEROPENEM. [Suspect]
     Active Substance: MEROPENEM
     Indication: ARTHRITIS BACTERIAL
     Route: 042

REACTIONS (1)
  - Eosinophilic pneumonia [Recovered/Resolved]
